FAERS Safety Report 6609391-4 (Version None)
Quarter: 2010Q1

REPORT INFORMATION
  Report Type: 
  Country: None (occurrence: None)
  Receive Date: 20100224
  Receipt Date: 20100212
  Transmission Date: 20100710
  Serious: Yes (Other)
  Sender: FDA-Public Use
  Company Number: 1000011466

PATIENT
  Age: 36 Year
  Sex: Male

DRUGS (5)
  1. ESCITALOPRAM [Suspect]
     Indication: DEPRESSION
     Dosage: 10 MG (10 MG,1 IN1 D),ORAL
     Route: 048
     Dates: start: 20061120
  2. XYZAL [Concomitant]
  3. MOTILIUM [Concomitant]
  4. OKTANOL [Concomitant]
  5. CROMOHEXAL (SOLUTION) [Concomitant]

REACTIONS (5)
  - CHORIORETINOPATHY [None]
  - FATIGUE [None]
  - MACULAR DEGENERATION [None]
  - UNEVALUABLE EVENT [None]
  - VISUAL IMPAIRMENT [None]
